FAERS Safety Report 8623150-2 (Version None)
Quarter: 2012Q3

REPORT INFORMATION
  Report Type: 
  Country: None (occurrence: None)
  Receive Date: 20120827
  Receipt Date: 20120820
  Transmission Date: 20120928
  Serious: Yes (Other)
  Sender: FDA-Public Use
  Company Number: US-JNJFOC-20120604890

PATIENT
  Age: 55 Year
  Sex: Female
  Weight: 56.7 kg

DRUGS (12)
  1. DIOVAN HCT [Concomitant]
     Indication: BLOOD PRESSURE
     Route: 065
  2. HYDROCODONE BITARTRATE [Concomitant]
     Indication: PAIN
     Route: 065
  3. OXYGEN [Concomitant]
     Route: 065
  4. BENADRYL [Suspect]
     Indication: HYPERSENSITIVITY
     Route: 048
     Dates: start: 20120608
  5. DILTIAZEM [Concomitant]
     Indication: CARDIAC DISORDER
     Route: 065
  6. DEXILANT [Concomitant]
     Indication: GASTRIC DISORDER
     Route: 065
  7. BLOOD PRESSURE MEDICATION NOS [Concomitant]
     Route: 065
  8. ANXIETY MEDICATION [Concomitant]
     Route: 065
  9. INHALER (UNSPECIFIED) [Concomitant]
     Route: 065
  10. XANAX [Concomitant]
     Indication: ANXIETY
     Route: 065
  11. HEART MEDICATION (UNKNOWN) [Concomitant]
     Route: 065
  12. ACID REFLUX MEDICATION [Concomitant]
     Route: 065

REACTIONS (7)
  - BURNING SENSATION [None]
  - ERYTHEMA [None]
  - OFF LABEL USE [None]
  - TINNITUS [None]
  - THERAPEUTIC RESPONSE UNEXPECTED [None]
  - SWELLING FACE [None]
  - HEART RATE INCREASED [None]
